FAERS Safety Report 13739933 (Version 2)
Quarter: 2017Q3

REPORT INFORMATION
  Report Type: Report from Study
  Country: None (occurrence: BE)
  Receive Date: 20170711
  Receipt Date: 20170801
  Transmission Date: 20171127
  Serious: Yes (Death, Hospitalization, Other)
  Sender: FDA-Public Use
  Company Number: BE-ABBVIE-17P-013-2033252-00

PATIENT
  Sex: Female

DRUGS (7)
  1. STALEVO 100 [Concomitant]
     Dosage: EMERGENCY PARKINSON MEDICATION
  2. DUODOPA [Suspect]
     Active Substance: CARBIDOPA\LEVODOPA
     Dosage: MD: 0ML; ??CD: 2.2ML/H FOR 16HRS; ND: 0ML/H FOR 8HRS;??ED: 2ML
     Route: 050
     Dates: start: 20170630, end: 20170704
  3. DUODOPA [Suspect]
     Active Substance: CARBIDOPA\LEVODOPA
     Indication: PARKINSON^S DISEASE
     Dosage: MD: 8ML; ??CD: 1.9ML/H FOR 16HRS;??ED: 1ML
     Route: 050
     Dates: start: 20140804, end: 20140808
  4. DUODOPA [Suspect]
     Active Substance: CARBIDOPA\LEVODOPA
     Dosage: MD: 1.3ML; ??CD: 1.5ML/H FOR 16HRS; ??ED: 1.5ML
     Route: 050
     Dates: start: 20170704, end: 201707
  5. DUODOPA [Suspect]
     Active Substance: CARBIDOPA\LEVODOPA
     Dosage: MD: 0ML; ??CD: 2.2ML/H FOR 16HRS; ND: 1.8ML/H FOR 8HRS;??ED: 2ML
     Route: 050
     Dates: start: 20170511, end: 20170630
  6. DUODOPA [Suspect]
     Active Substance: CARBIDOPA\LEVODOPA
     Dosage: DOSAGES CONTINUOUSLY MONITORED AND ADJUSTED
     Route: 050
     Dates: start: 20140808, end: 20170511
  7. STALEVO 100 [Concomitant]
     Indication: PARKINSON^S DISEASE
     Dosage: FORM STRENGTH: 100MG/25MG/200MG
     Route: 048

REACTIONS (4)
  - Cerebral haemorrhage [Fatal]
  - Unresponsive to stimuli [Unknown]
  - Confusional state [Unknown]
  - General physical health deterioration [Unknown]
